FAERS Safety Report 5310314-9 (Version None)
Quarter: 2007Q2

REPORT INFORMATION
  Report Type: 
  Country: None (occurrence: None)
  Receive Date: 20070423
  Receipt Date: 20070411
  Transmission Date: 20071010
  Serious: Yes (Hospitalization)
  Sender: FDA-Public Use
  Company Number: 2007SP006895

PATIENT
  Age: 11 Year
  Sex: Female

DRUGS (16)
  1. BETAMETHASONE [Suspect]
     Indication: DRUG USE FOR UNKNOWN INDICATION
     Dates: start: 20070329, end: 20070329
  2. FLUMARIN (FLOMOXEF SODIUM) [Suspect]
     Indication: INFECTION PROPHYLAXIS
     Dosage: SEE IMAGE
     Route: 042
     Dates: start: 20070330, end: 20070401
  3. FLUMARIN (FLOMOXEF SODIUM) [Suspect]
     Indication: ORAL SURGERY
     Dosage: SEE IMAGE
     Route: 042
     Dates: start: 20070330, end: 20070401
  4. FLUMARIN (FLOMOXEF SODIUM) [Suspect]
     Indication: INFECTION PROPHYLAXIS
     Dosage: SEE IMAGE
     Route: 042
     Dates: start: 20070402, end: 20070402
  5. FLUMARIN (FLOMOXEF SODIUM) [Suspect]
     Indication: ORAL SURGERY
     Dosage: SEE IMAGE
     Route: 042
     Dates: start: 20070402, end: 20070402
  6. FLUMARIN (FLOMOXEF SODIUM) [Suspect]
     Indication: INFECTION PROPHYLAXIS
     Dosage: SEE IMAGE
     Route: 042
     Dates: start: 20070403, end: 20070404
  7. FLUMARIN (FLOMOXEF SODIUM) [Suspect]
     Indication: ORAL SURGERY
     Dosage: SEE IMAGE
     Route: 042
     Dates: start: 20070403, end: 20070404
  8. FLUMARIN (FLOMOXEF SODIUM) [Suspect]
     Indication: INFECTION PROPHYLAXIS
     Dosage: SEE IMAGE
     Route: 042
     Dates: start: 20070329
  9. FLUMARIN (FLOMOXEF SODIUM) [Suspect]
     Indication: ORAL SURGERY
     Dosage: SEE IMAGE
     Route: 042
     Dates: start: 20070329
  10. ADONA (CON.) [Concomitant]
  11. TRANSAMIN (CON.) [Concomitant]
  12. DORMICUM (CON.) [Concomitant]
  13. ATROPINE SULFATE (CON.) [Concomitant]
  14. BIOFERMIN (CON.) [Concomitant]
  15. ULCERLMIN (CON.) [Concomitant]
  16. GASTER (CON.) [Concomitant]

REACTIONS (2)
  - PANCYTOPENIA [None]
  - PYREXIA [None]
